FAERS Safety Report 9685279 (Version 2)
Quarter: 2013Q4

REPORT INFORMATION
  Report Type: Spontaneous
  Country: JP (occurrence: JP)
  Receive Date: 20131113
  Receipt Date: 20131113
  Transmission Date: 20140711
  Serious: Yes (Hospitalization)
  Sender: FDA-Public Use
  Company Number: JP-TAKEDA-0239300

PATIENT
  Age: 47 Year
  Sex: Male

DRUGS (9)
  1. TACHOSIL [Suspect]
     Indication: PROPHYLAXIS
     Dosage: 1 SHEET OF REGULAR SIZE
     Dates: start: 20130214, end: 20130214
  2. FOSRENOL [Concomitant]
     Indication: RENAL FAILURE CHRONIC
     Dosage: 250 MG, TID
  3. KALIMATE [Concomitant]
     Indication: RENAL FAILURE CHRONIC
     Dosage: 75 G, QD
     Route: 048
  4. CALTAN [Concomitant]
     Indication: RENAL FAILURE CHRONIC
     Dosage: 500 MG, TID
     Route: 048
  5. LIPITOR [Concomitant]
     Indication: HYPERLIPIDAEMIA
     Dosage: 10 MG, QD
     Route: 048
  6. NEXIUM [Concomitant]
     Indication: GASTRIC ULCER
     Dosage: BEFORE THE SURGERY
     Route: 048
  7. OLMETEC [Concomitant]
     Indication: HYPERTENSION
     Dosage: 20 MG, QD
     Route: 048
  8. BOLHEAL [Concomitant]
     Indication: AORTIC DISSECTION
     Dosage: 3 ML, UNK
     Dates: start: 20130214, end: 20130214
  9. FIBROGAMMIN [Concomitant]
     Indication: CONCOMITANT DISEASE AGGRAVATED
     Dosage: 6VIALS/DAY

REACTIONS (1)
  - Chylothorax [Recovered/Resolved]
